FAERS Safety Report 11399010 (Version 1)
Quarter: 2015Q3

REPORT INFORMATION
  Report Type: Spontaneous
  Country: US (occurrence: None)
  Receive Date: 20150818
  Receipt Date: 20150818
  Transmission Date: 20151125
  Serious: Yes (Other)
  Sender: FDA-Public Use
  Company Number: None

PATIENT

DRUGS (1)
  1. MIRENA [Suspect]
     Active Substance: LEVONORGESTREL

REACTIONS (15)
  - Insomnia [None]
  - Dizziness [None]
  - Myalgia [None]
  - Vomiting [None]
  - Migraine [None]
  - Pelvic pain [None]
  - Paraesthesia [None]
  - Sinusitis [None]
  - Musculoskeletal disorder [None]
  - Vision blurred [None]
  - Discomfort [None]
  - Nausea [None]
  - Sinus headache [None]
  - Diarrhoea [None]
  - Anxiety [None]

NARRATIVE: CASE EVENT DATE: 20150730
